FAERS Safety Report 19973140 (Version 1)
Quarter: 2021Q4

REPORT INFORMATION
  Report Type: Spontaneous
  Country: US (occurrence: US)
  Receive Date: 20211019
  Receipt Date: 20211019
  Transmission Date: 20220303
  Serious: No
  Sender: FDA-Public Use
  Company Number: None

PATIENT
  Age: 13 Year
  Sex: Male

DRUGS (1)
  1. PROMACTA [Suspect]
     Active Substance: ELTROMBOPAG OLAMINE
     Dosage: ?          OTHER DOSE:75;
     Route: 048
     Dates: start: 20210606

REACTIONS (9)
  - White blood cell count increased [None]
  - Pruritus [None]
  - Pruritus [None]
  - Pruritus [None]
  - Rash pruritic [None]
  - Scab [None]
  - Rash erythematous [None]
  - Headache [None]
  - Dizziness [None]

NARRATIVE: CASE EVENT DATE: 20211015
